FAERS Safety Report 19640567 (Version 1)
Quarter: 2021Q3

REPORT INFORMATION
  Report Type: Report from Study
  Country: CA (occurrence: CA)
  Receive Date: 20210730
  Receipt Date: 20210730
  Transmission Date: 20211014
  Serious: Yes (Other)
  Sender: FDA-Public Use
  Company Number: CA-TAKEDA-2020TUS054496

PATIENT
  Age: 65 Year
  Sex: Male

DRUGS (15)
  1. LANTUS [Concomitant]
     Active Substance: INSULIN GLARGINE
     Dosage: UNK
  2. PALAFER [Concomitant]
     Active Substance: FERROUS FUMARATE
     Dosage: UNK
  3. METFORMIN [Concomitant]
     Active Substance: METFORMIN HYDROCHLORIDE
     Dosage: 200 MILLIGRAM, QD
  4. IRON [Concomitant]
     Active Substance: IRON
     Indication: SUPPLEMENTATION THERAPY
     Dosage: UNK
  5. AMLODIPINE [Concomitant]
     Active Substance: AMLODIPINE BESYLATE
     Dosage: UNK
  6. VITAMIN C [Concomitant]
     Active Substance: ASCORBIC ACID
     Dosage: UNK
  7. VEDOLIZUMAB [Suspect]
     Active Substance: VEDOLIZUMAB
     Dosage: 300 MILLIGRAM, Q6WEEKS
     Route: 042
     Dates: start: 20180717
  8. ZOPICLONE [Concomitant]
     Active Substance: ZOPICLONE
     Dosage: UNK
  9. VICTOZA [Concomitant]
     Active Substance: LIRAGLUTIDE
     Dosage: UNK
  10. RAMIPRIL. [Concomitant]
     Active Substance: RAMIPRIL
     Dosage: UNK
  11. ROSUVASTATIN. [Concomitant]
     Active Substance: ROSUVASTATIN
     Dosage: UNK
  12. RAPAFLO [Concomitant]
     Active Substance: SILODOSIN
     Dosage: UNK
  13. VEDOLIZUMAB [Suspect]
     Active Substance: VEDOLIZUMAB
     Dosage: 300 MILLIGRAM, Q4WEEKS
     Route: 042
     Dates: start: 20181115
  14. OMEPRAZOLE. [Concomitant]
     Active Substance: OMEPRAZOLE
     Dosage: UNK
  15. VEDOLIZUMAB [Suspect]
     Active Substance: VEDOLIZUMAB
     Indication: COLITIS ULCERATIVE
     Dosage: 300 MILLIGRAM
     Route: 042
     Dates: start: 20160810

REACTIONS (2)
  - Hip arthroplasty [Unknown]
  - Off label use [Unknown]

NARRATIVE: CASE EVENT DATE: 20180717
